FAERS Safety Report 9183666 (Version 1)
Quarter: 2013Q1

REPORT INFORMATION
  Report Type: Spontaneous
  Country: US (occurrence: US)
  Receive Date: 20130322
  Receipt Date: 20130322
  Transmission Date: 20140127
  Serious: No
  Sender: FDA-Public Use
  Company Number: US-BRISTOL-MYERS SQUIBB COMPANY-16577702

PATIENT
  Sex: Male

DRUGS (1)
  1. ERBITUX SOLN FOR INF [Suspect]
     Dosage: LAST DOSE ON: 25APR12
     Dates: start: 201201

REACTIONS (3)
  - Pain in extremity [Unknown]
  - Acne [Unknown]
  - Nail disorder [Unknown]
